FAERS Safety Report 14965398 (Version 1)
Quarter: 2018Q2

REPORT INFORMATION
  Report Type: Report from Study
  Country: None (occurrence: FR)
  Receive Date: 20180601
  Receipt Date: 20180601
  Transmission Date: 20180711
  Serious: Yes (Hospitalization, Other)
  Sender: FDA-Public Use
  Company Number: FR-ABBVIE-18P-056-2372027-00

PATIENT
  Age: 32 Year
  Sex: Female
  Weight: 52 kg

DRUGS (1)
  1. HUMIRA [Suspect]
     Active Substance: ADALIMUMAB
     Indication: CROHN^S DISEASE
     Route: 058
     Dates: start: 201403, end: 201604

REACTIONS (29)
  - Selective abortion [Recovered/Resolved]
  - Cough [Recovered/Resolved]
  - Dyspnoea [Recovered/Resolved]
  - Lung disorder [Recovered/Resolved]
  - Neutrophilia [Recovered/Resolved]
  - Influenza like illness [Recovered/Resolved]
  - Pleural effusion [Recovered/Resolved]
  - Bolivian haemorrhagic fever [Recovered/Resolved]
  - Pain [Unknown]
  - Headache [Unknown]
  - General physical condition abnormal [Recovered/Resolved]
  - Crohn^s disease [Recovered/Resolved]
  - Exposure during pregnancy [Recovered/Resolved]
  - Arthritis [Unknown]
  - Dyspnoea [Recovered/Resolved]
  - Asthenia [Recovered/Resolved]
  - Pallor [Unknown]
  - Arthralgia [Recovered/Resolved]
  - Microcytic anaemia [Unknown]
  - Nausea [Unknown]
  - Infection [Recovered/Resolved]
  - Sweating fever [Recovered/Resolved]
  - Anaemia of chronic disease [Unknown]
  - Cough [Recovered/Resolved]
  - Joint effusion [Unknown]
  - Pleural disorder [Recovered/Resolved]
  - Pyrexia [Recovered/Resolved]
  - Retained placenta or membranes [Recovered/Resolved]
  - Thrombocytosis [Unknown]

NARRATIVE: CASE EVENT DATE: 20141117
